FAERS Safety Report 18401615 (Version 1)
Quarter: 2020Q4

REPORT INFORMATION
  Report Type: Spontaneous
  Country: JP (occurrence: JP)
  Receive Date: 20201019
  Receipt Date: 20201019
  Transmission Date: 20210114
  Serious: Yes (Other)
  Sender: FDA-Public Use
  Company Number: NVSJ2020JP010456

PATIENT
  Sex: Female
  Weight: 2.93 kg

DRUGS (13)
  1. ZONISAMIDE. [Suspect]
     Active Substance: ZONISAMIDE
     Indication: INFANTILE SPASMS
     Dosage: 10 MG/KG
     Route: 065
  2. PHENOBARBITAL. [Suspect]
     Active Substance: PHENOBARBITAL
     Dosage: 24 MG
     Route: 048
  3. TEGRETOL [Suspect]
     Active Substance: CARBAMAZEPINE
     Indication: INFANTILE SPASMS
     Dosage: 10 MG/KG
     Route: 048
  4. PHENOBARBITAL. [Suspect]
     Active Substance: PHENOBARBITAL
     Dosage: HIGH-DOSE
     Route: 042
  5. PHENOBARBITAL. [Suspect]
     Active Substance: PHENOBARBITAL
     Dosage: 15 MG
     Route: 048
  6. PHENOBARBITAL. [Suspect]
     Active Substance: PHENOBARBITAL
     Dosage: 10 MG/KG
     Route: 042
  7. VALPROATE SODIUM. [Suspect]
     Active Substance: VALPROATE SODIUM
     Indication: INFANTILE SPASMS
     Dosage: 25 MG/KG
     Route: 065
  8. VITAMIN B6 [Suspect]
     Active Substance: PYRIDOXINE HYDROCHLORIDE
     Indication: INFANTILE SPASMS
     Dosage: 25 MG/KG
     Route: 065
  9. KCL [Concomitant]
     Active Substance: POTASSIUM CHLORIDE
     Indication: PRODUCT USED FOR UNKNOWN INDICATION
     Dosage: 24 MG
     Route: 065
  10. KCL [Concomitant]
     Active Substance: POTASSIUM CHLORIDE
     Dosage: 6.8 MG
     Route: 065
  11. PHENOBARBITAL. [Suspect]
     Active Substance: PHENOBARBITAL
     Dosage: 18 MG
     Route: 048
  12. PHENOBARBITAL. [Suspect]
     Active Substance: PHENOBARBITAL
     Indication: INFANTILE SPASMS
     Dosage: 10 MG/KG
     Route: 042
  13. PHENOBARBITAL. [Suspect]
     Active Substance: PHENOBARBITAL
     Indication: INFANTILE SPASMS
     Dosage: 68 MG
     Route: 048

REACTIONS (5)
  - Seizure [Recovered/Resolved]
  - Hyperammonaemia [Unknown]
  - Thrombocytopenia [Unknown]
  - Drug ineffective [Unknown]
  - Myoclonus [Unknown]
